FAERS Safety Report 8133583-9 (Version None)
Quarter: 2012Q1

REPORT INFORMATION
  Report Type: 
  Country: None (occurrence: None)
  Receive Date: 20120213
  Receipt Date: 20120201
  Transmission Date: 20120608
  Serious: Yes (Other)
  Sender: FDA-Public Use
  Company Number: HU-ELI_LILLY_AND_COMPANY-HU201202000519

PATIENT
  Age: 40 Year
  Sex: Male

DRUGS (2)
  1. OLANZAPINE [Suspect]
     Indication: SCHIZOPHRENIA, PARANOID TYPE
     Dosage: 405 MG, EVERY THREE WEEKS
     Route: 030
  2. FRONTIN [Concomitant]
     Dosage: UNK, UNKNOWN

REACTIONS (3)
  - SYNCOPE [None]
  - BRONCHITIS [None]
  - SOMNOLENCE [None]
